FAERS Safety Report 17835274 (Version 1)
Quarter: 2020Q2

REPORT INFORMATION
  Report Type: Spontaneous
  Country: DE (occurrence: DE)
  Receive Date: 20200528
  Receipt Date: 20200528
  Transmission Date: 20200714
  Serious: Yes (Other)
  Sender: FDA-Public Use
  Company Number: DE-AMGEN-DEUSP2020083097

PATIENT
  Age: 67 Year
  Sex: Female

DRUGS (1)
  1. PROLIA [Suspect]
     Active Substance: DENOSUMAB
     Indication: OSTEOPOROSIS
     Dosage: UNK
     Route: 065
     Dates: start: 2018

REACTIONS (5)
  - Selective IgG subclass deficiency [Not Recovered/Not Resolved]
  - Influenza [Unknown]
  - Chronic respiratory disease [Unknown]
  - Mycoplasma infection [Unknown]
  - Sinusitis [Unknown]
